FAERS Safety Report 6555432-2 (Version None)
Quarter: 2010Q1

REPORT INFORMATION
  Report Type: 
  Country: None (occurrence: None)
  Receive Date: 20100128
  Receipt Date: 20091117
  Transmission Date: 20100710
  Serious: No
  Sender: FDA-Public Use
  Company Number: A0822158A

PATIENT
  Sex: Female

DRUGS (2)
  1. WELLBUTRIN [Suspect]
     Indication: ANTIDEPRESSANT THERAPY
  2. WELLBUTRIN [Suspect]

REACTIONS (2)
  - CONDITION AGGRAVATED [None]
  - UNDERDOSE [None]
